FAERS Safety Report 6709558-0 (Version None)
Quarter: 2010Q2

REPORT INFORMATION
  Report Type: 
  Country: None (occurrence: None)
  Receive Date: 20100429
  Receipt Date: 20090625
  Transmission Date: 20101027
  Serious: No
  Sender: FDA-Public Use
  Company Number: 2009-00359

PATIENT
  Age: 51 Year
  Sex: Male
  Weight: 81.6475 kg

DRUGS (3)
  1. ZICAM COLD REMEDY GEL SWABS [Suspect]
     Dates: start: 20090301, end: 20090301
  2. CODEINE SUL TAB [Concomitant]
  3. TEMAZEPAM [Concomitant]

REACTIONS (1)
  - ANOSMIA [None]
